FAERS Safety Report 14861023 (Version 1)
Quarter: 2018Q2

REPORT INFORMATION
  Report Type: Spontaneous
  Country: FR (occurrence: FR)
  Receive Date: 20180508
  Receipt Date: 20180508
  Transmission Date: 20180711
  Serious: Yes (Other)
  Sender: FDA-Public Use
  Company Number: FR-MYLANLABS-2018M1030625

PATIENT
  Age: 21 Year
  Sex: Female

DRUGS (2)
  1. BISOPROLOL [Suspect]
     Active Substance: BISOPROLOL
     Indication: CARDIAC FAILURE
     Dosage: 5 MG, UNK
  2. BISOPROLOL [Suspect]
     Active Substance: BISOPROLOL
     Dosage: 7 MG, UNK

REACTIONS (2)
  - Condition aggravated [Recovering/Resolving]
  - Cardiac failure [Recovering/Resolving]
